FAERS Safety Report 5675831-0 (Version None)
Quarter: 2008Q1

REPORT INFORMATION
  Report Type: 
  Country: None (occurrence: None)
  Receive Date: 20080318
  Receipt Date: 20080307
  Transmission Date: 20080703
  Serious: Yes (Hospitalization)
  Sender: FDA-Public Use
  Company Number: S08-USA-00916-01

PATIENT
  Age: 28 Year
  Sex: Female
  Weight: 54.4316 kg

DRUGS (6)
  1. CELEXA [Suspect]
     Indication: BIPOLAR DISORDER
     Dosage: 40 MG QD PO
     Route: 048
     Dates: start: 20080211, end: 20080225
  2. CELEXA [Suspect]
     Indication: BIPOLAR DISORDER
     Dosage: 20 MG QD PO
     Route: 048
     Dates: start: 20080302, end: 20080306
  3. TRAZODONE HCL [Concomitant]
  4. CELEXA [Suspect]
     Indication: BIPOLAR DISORDER
     Dosage: 10 MG QD PO
     Route: 048
     Dates: start: 20071101, end: 20080113
  5. CELEXA [Suspect]
     Indication: BIPOLAR DISORDER
     Dosage: 20 MG QD PO
     Route: 048
     Dates: start: 20080114, end: 20080127
  6. CELEXA [Suspect]
     Indication: BIPOLAR DISORDER
     Dosage: 30 MG QD PO
     Route: 048
     Dates: start: 20080128, end: 20080210

REACTIONS (6)
  - AGITATION [None]
  - ANGER [None]
  - CRYING [None]
  - DEPRESSION [None]
  - INSOMNIA [None]
  - IRRITABILITY [None]
